FAERS Safety Report 22701517 (Version 3)
Quarter: 2023Q4

REPORT INFORMATION
  Report Type: Report from Study
  Country: KR (occurrence: KR)
  Receive Date: 20230713
  Receipt Date: 20231009
  Transmission Date: 20240110
  Serious: Yes (Hospitalization, Other)
  Sender: FDA-Public Use
  Company Number: KR-TAKEDA-2023TUS067543

PATIENT
  Age: 26 Year
  Sex: Female
  Weight: 43 kg

DRUGS (42)
  1. VEDOLIZUMAB [Suspect]
     Active Substance: VEDOLIZUMAB
     Indication: Crohn^s disease
     Dosage: 300 MILLIGRAM, QD
     Route: 042
     Dates: start: 20230531, end: 20230531
  2. VEDOLIZUMAB [Suspect]
     Active Substance: VEDOLIZUMAB
     Dosage: 300 MILLIGRAM, QD
     Route: 042
     Dates: start: 20230614
  3. METHIMAZOLE [Concomitant]
     Active Substance: METHIMAZOLE
     Dosage: 1.25 MILLIGRAM, QOD
     Route: 048
     Dates: start: 20221012
  4. ENCOVER [Concomitant]
     Indication: Nutritional supplementation
     Dosage: 200 MILLILITER
     Route: 048
     Dates: start: 20230614
  5. Flumarin [Concomitant]
     Indication: Adverse event
     Dosage: 1000 MILLIGRAM, QD
     Route: 042
     Dates: start: 20230625
  6. VITAMIN K1 [Concomitant]
     Active Substance: PHYTONADIONE
     Indication: Adverse event
     Dosage: 10 MILLIGRAM, QD
     Route: 030
     Dates: start: 20230625
  7. LECLEAN [Concomitant]
     Dosage: 133 MILLILITER, QD
     Route: 054
     Dates: start: 20230626
  8. ACETPHEN PREMIX [Concomitant]
     Indication: Crohn^s disease
     Dosage: 100 MILLILITER, QD
     Route: 042
     Dates: start: 20230625, end: 20230625
  9. ACETPHEN PREMIX [Concomitant]
     Dosage: 100 MILLILITER, QD
     Route: 042
     Dates: start: 20230627
  10. FRESOFOL MCT [Concomitant]
     Indication: Adverse event
     Dosage: 60 MILLIGRAM, QD
     Route: 042
     Dates: start: 20230626
  11. REMIVA [Concomitant]
     Indication: Adverse event
     Dosage: 1 MILLIGRAM, QD
     Route: 042
     Dates: start: 20230626
  12. FENTANYL CITRATE [Concomitant]
     Active Substance: FENTANYL CITRATE
     Indication: Adverse event
     Dosage: 20 MILLILITER, QD
     Route: 042
     Dates: start: 20230626
  13. RAMOSETRON HYDROCHLORIDE [Concomitant]
     Active Substance: RAMOSETRON HYDROCHLORIDE
     Indication: Adverse event
     Dosage: 0.3 MILLIGRAM, QD
     Route: 042
     Dates: start: 20230626
  14. ROCURONIUM BROMIDE [Concomitant]
     Active Substance: ROCURONIUM BROMIDE
     Indication: Adverse event
     Dosage: 5 MILLILITER, QD
     Route: 042
     Dates: start: 20230626
  15. CALCIUM POLYCARBOPHIL [Concomitant]
     Active Substance: CALCIUM POLYCARBOPHIL
     Indication: Adverse event
     Dosage: 1250 MILLILITER, TID
     Route: 048
     Dates: start: 20230626, end: 20230628
  16. CALCIUM POLYCARBOPHIL [Concomitant]
     Active Substance: CALCIUM POLYCARBOPHIL
     Dosage: 1250 MILLILITER, BID
     Route: 048
     Dates: start: 20230629
  17. FLASINYL [Concomitant]
     Indication: Adverse event
     Dosage: 250 MILLIGRAM, TID
     Route: 048
     Dates: start: 20230626, end: 20230628
  18. FLASINYL [Concomitant]
     Dosage: 250 MILLIGRAM, BID
     Route: 048
     Dates: start: 20230629, end: 20230701
  19. FLASINYL [Concomitant]
     Dosage: 250 MILLIGRAM, QID
     Route: 048
     Dates: start: 20230702
  20. RAMNOS [Concomitant]
     Indication: Adverse event
     Dosage: 250 MILLIGRAM, TID
     Route: 048
     Dates: start: 20230626, end: 20230628
  21. RAMNOS [Concomitant]
     Dosage: 250 MILLIGRAM, BID
     Route: 048
     Dates: start: 20230629
  22. Ceftriaxone boryung [Concomitant]
     Indication: Adverse event
     Dosage: UNK UNK, QD
     Route: 042
     Dates: start: 20230628
  23. METOCLOPRAMIDE HYDROCHLORIDE [Concomitant]
     Active Substance: METOCLOPRAMIDE HYDROCHLORIDE
     Indication: Adverse event
     Dosage: 5 MILLIGRAM, QD
     Route: 042
     Dates: start: 20230628
  24. CEFTRIAXONE SODIUM [Concomitant]
     Active Substance: CEFTRIAXONE SODIUM
     Indication: Adverse event
     Dosage: UNK UNK, QD
     Route: 042
     Dates: start: 20230629
  25. FLOSPAN [Concomitant]
     Indication: Crohn^s disease
     Dosage: 80 MILLIGRAM, BID
     Route: 048
     Dates: start: 20230629, end: 20230630
  26. FLOSPAN [Concomitant]
     Dosage: 80 MILLIGRAM, TID
     Route: 048
     Dates: start: 20230705
  27. SK ALBUMIN [Concomitant]
     Dosage: 100 MILLILITER, QD
     Route: 042
     Dates: start: 20230629
  28. Citopcin [Concomitant]
     Indication: Adverse event
     Dosage: 200 MILLILITER, BID
     Route: 042
     Dates: start: 20230629, end: 20230629
  29. Citopcin [Concomitant]
     Dosage: 500 MILLIGRAM, BID
     Route: 048
     Dates: start: 20230630, end: 20230706
  30. PINAVERIUM BROMIDE [Concomitant]
     Active Substance: PINAVERIUM BROMIDE
     Indication: Adverse event
     Dosage: 50 MILLIGRAM, TID
     Route: 048
     Dates: start: 20230630
  31. OMAPONE PERI [Concomitant]
     Indication: Adverse event
     Dosage: 952 MILLILITER, QD
     Route: 042
     Dates: start: 20230630
  32. PENIMADOL [Concomitant]
     Indication: Crohn^s disease
     Dosage: 0.5 MILLILITER, QD
     Route: 042
     Dates: start: 20230630, end: 20230630
  33. PENIMADOL [Concomitant]
     Dosage: 0.5 MILLILITER, QD
     Route: 042
     Dates: start: 20230701, end: 20230701
  34. PENIMADOL [Concomitant]
     Dosage: 0.5 MILLILITER, QD
     Route: 042
     Dates: start: 20230704
  35. FOTAGEL [Concomitant]
     Indication: Adverse event
     Dosage: 20 MILLILITER, TID
     Route: 048
     Dates: start: 20230703
  36. PACETA [Concomitant]
     Indication: Crohn^s disease
     Dosage: 5 MILLILITER, QD
     Route: 042
     Dates: start: 20230703
  37. PACETA [Concomitant]
     Dosage: 5 MILLILITER, QD
     Route: 042
     Dates: start: 20230704
  38. REBAMIPIDE [Concomitant]
     Active Substance: REBAMIPIDE
     Indication: Adverse event
     Dosage: 150 MILLIGRAM, BID
     Route: 048
     Dates: start: 20230704
  39. AMITRIPTYLINE HYDROCHLORIDE [Concomitant]
     Active Substance: AMITRIPTYLINE HYDROCHLORIDE
     Indication: Adverse event
     Dosage: 5 MILLIGRAM, QD
     Route: 048
     Dates: start: 20230704
  40. PENTASA [Concomitant]
     Active Substance: MESALAMINE
     Dosage: UNK UNK, QD
     Route: 048
     Dates: end: 20230628
  41. PENTASA [Concomitant]
     Active Substance: MESALAMINE
     Dosage: 1000 MILLIGRAM, BID
     Route: 048
     Dates: start: 20230629
  42. METHYLPREDNISOLONE [Concomitant]
     Active Substance: METHYLPREDNISOLONE
     Dosage: 8 MILLIGRAM, BID
     Route: 048
     Dates: start: 20230614

REACTIONS (2)
  - Anal fistula [Recovering/Resolving]
  - Abscess [Recovering/Resolving]

NARRATIVE: CASE EVENT DATE: 20230615
